FAERS Safety Report 6240093-2 (Version None)
Quarter: 2009Q2

REPORT INFORMATION
  Report Type: 
  Country: None (occurrence: None)
  Receive Date: 20090618
  Receipt Date: 20090618
  Transmission Date: 20091009
  Serious: Yes (Other)
  Sender: FDA-Public Use
  Company Number: None

PATIENT
  Sex: Male
  Weight: 83.9154 kg

DRUGS (1)
  1. ZICAM COLD REMEDY NASAL SPRAY ZICAM [Suspect]
     Indication: NASOPHARYNGITIS
     Dosage: ONE ^SPRAY^ 3 TIMES DAILY NASAL
     Route: 045

REACTIONS (1)
  - ANOSMIA [None]
